FAERS Safety Report 5425151-4 (Version None)
Quarter: 2007Q3

REPORT INFORMATION
  Report Type: 
  Country: None (occurrence: None)
  Receive Date: 20070824
  Receipt Date: 20070823
  Transmission Date: 20080115
  Serious: Yes (Death, Life-Threatening, Hospitalization, Other)
  Sender: FDA-Public Use
  Company Number: US-BRISTOL-MYERS SQUIBB COMPANY-13882782

PATIENT
  Age: 53 Year
  Sex: Male

DRUGS (5)
  1. ETOPOSIDE [Suspect]
     Indication: ACUTE MYELOID LEUKAEMIA
     Dates: start: 20070706, end: 20070710
  2. CEP-701 [Suspect]
     Indication: ACUTE MYELOID LEUKAEMIA
     Route: 048
     Dates: start: 20070712, end: 20070726
  3. MITOXANTRONE [Suspect]
     Indication: ACUTE MYELOID LEUKAEMIA
     Dates: start: 20070706, end: 20070710
  4. CYTARABINE [Suspect]
     Indication: ACUTE MYELOID LEUKAEMIA
     Dates: start: 20070706, end: 20070710
  5. AMPHOTERICIN B [Suspect]
     Indication: ANTIFUNGAL PROPHYLAXIS
     Dates: start: 20070711, end: 20070714

REACTIONS (10)
  - BRADYCARDIA [None]
  - CARDIAC ARREST [None]
  - HYPERNATRAEMIA [None]
  - HYPOTENSION [None]
  - HYPOXIA [None]
  - MUCOSAL INFLAMMATION [None]
  - NEUTROPENIC SEPSIS [None]
  - PNEUMONIA ASPIRATION [None]
  - RENAL FAILURE [None]
  - RESPIRATORY ARREST [None]
